FAERS Safety Report 8917528 (Version 1)
Quarter: 2012Q4

REPORT INFORMATION
  Report Type: 
  Country: US (occurrence: US)
  Receive Date: 20121120
  Receipt Date: 20121120
  Transmission Date: 20130627
  Serious: No
  Sender: FDA-Public Use
  Company Number: US-B.I. PHARMACEUTICALS,INC./RIDGEFIELD-2012-BI-00357BP

PATIENT
  Age: 76 Year
  Sex: Female

DRUGS (4)
  1. SPIRIVA [Suspect]
     Indication: CHRONIC OBSTRUCTIVE PULMONARY DISEASE
     Dosage: 18 mcg
     Route: 055
  2. PREDNISONE [Concomitant]
  3. ARCAPTA [Concomitant]
  4. ALBUTEROL [Concomitant]

REACTIONS (3)
  - Dyspnoea [Unknown]
  - Bronchospasm [Unknown]
  - Cough [Unknown]
